FAERS Safety Report 19349276 (Version 1)
Quarter: 2021Q2

REPORT INFORMATION
  Report Type: Spontaneous
  Country: JP (occurrence: JP)
  Receive Date: 20210531
  Receipt Date: 20210531
  Transmission Date: 20210717
  Serious: Yes (Other)
  Sender: FDA-Public Use
  Company Number: JP-AUROBINDO-AUR-APL-2021-021781

PATIENT
  Age: 72 Year
  Sex: Female

DRUGS (6)
  1. LENADEX [Concomitant]
     Active Substance: DEXAMETHASONE ACETATE
     Indication: PLASMA CELL MYELOMA
     Dosage: UNK
     Route: 048
  2. MELPHALAN. [Suspect]
     Active Substance: MELPHALAN
     Indication: PLASMA CELL MYELOMA
     Dosage: 6 MG/M2, ONCE A DAY
     Route: 065
  3. VELCADE [Suspect]
     Active Substance: BORTEZOMIB
     Indication: PLASMA CELL MYELOMA
     Dosage: DOSAGE FORM: LYOPHILIZED POWDER
     Route: 058
  4. VELCADE [Suspect]
     Active Substance: BORTEZOMIB
     Dosage: 1.3 MG/M2, 1 WEEK
     Route: 058
  5. PREDNISOLONE ACETATE. [Suspect]
     Active Substance: PREDNISOLONE ACETATE
     Indication: PLASMA CELL MYELOMA
     Dosage: 40 MG/M2, ONCE A DAY
     Route: 065
  6. PREDNISOLONE ACETATE. [Suspect]
     Active Substance: PREDNISOLONE ACETATE
     Dosage: UNK
     Route: 065

REACTIONS (3)
  - Bronchitis [Unknown]
  - Pneumonia [Recovered/Resolved]
  - Drug eruption [Recovered/Resolved]
